FAERS Safety Report 26126104 (Version 1)
Quarter: 2025Q4

REPORT INFORMATION
  Report Type: Spontaneous
  Country: US (occurrence: None)
  Receive Date: 20251205
  Receipt Date: 20251205
  Transmission Date: 20260118
  Serious: Yes (Hospitalization)
  Sender: FDA-CTU
  Company Number: None

PATIENT
  Sex: Male

DRUGS (2)
  1. GLASSIA [Suspect]
     Active Substance: .ALPHA.1-PROTEINASE INHIBITOR HUMAN
     Indication: Alpha-1 antitrypsin deficiency
     Dosage: 1000 MG EVERY 7 DAYS INTRAVENOUS?
     Route: 042
     Dates: start: 20241009
  2. GLASSIA [Suspect]
     Active Substance: .ALPHA.1-PROTEINASE INHIBITOR HUMAN
     Indication: Alpha-1 antitrypsin deficiency
     Dosage: ?8000 MG EVDERY 7 DAYS INTRAVENOUS
     Route: 042
     Dates: start: 20241009

REACTIONS (2)
  - Pneumonia [None]
  - Weight decreased [None]
